FAERS Safety Report 5654700-6 (Version None)
Quarter: 2008Q2

REPORT INFORMATION
  Report Type: 
  Country: None (occurrence: None)
  Receive Date: 20080307
  Receipt Date: 20080229
  Transmission Date: 20081010
  Serious: Yes (Other)
  Sender: FDA-Public Use
  Company Number: GB-JNJFOC-20080300309

PATIENT
  Age: 77 Year
  Sex: Male

DRUGS (1)
  1. OXYBUTYNIN CHLORIDE [Suspect]
     Indication: URINARY TRACT DISORDER
     Route: 048

REACTIONS (2)
  - FALL [None]
  - MUSCLE DISORDER [None]
